FAERS Safety Report 5334656-6 (Version None)
Quarter: 2007Q2

REPORT INFORMATION
  Report Type: 
  Country: None (occurrence: None)
  Receive Date: 20070525
  Receipt Date: 20070515
  Transmission Date: 20071010
  Serious: Yes (Hospitalization)
  Sender: FDA-Public Use
  Company Number: B0471171A

PATIENT
  Age: 51 Year
  Sex: Male
  Weight: 62.4 kg

DRUGS (6)
  1. PLACEBO [Suspect]
     Route: 042
     Dates: start: 20070509, end: 20070509
  2. ZOFRAN [Suspect]
     Dosage: 32MG SINGLE DOSE
     Route: 042
     Dates: start: 20070509, end: 20070509
  3. PLACEBO [Suspect]
     Route: 048
     Dates: start: 20070509, end: 20070511
  4. DEXAMETHASONE [Suspect]
     Route: 048
     Dates: start: 20070509, end: 20070512
  5. CISPLATIN [Concomitant]
     Indication: NON-SMALL CELL LUNG CANCER
     Dates: start: 20070509
  6. ETOPOSIDE [Concomitant]
     Indication: NON-SMALL CELL LUNG CANCER
     Dates: start: 20070509

REACTIONS (2)
  - BLOOD CREATININE INCREASED [None]
  - BLOOD UREA INCREASED [None]
